FAERS Safety Report 8080706-6 (Version None)
Quarter: 2012Q1

REPORT INFORMATION
  Report Type: 
  Country: None (occurrence: None)
  Receive Date: 20120130
  Receipt Date: 20120118
  Transmission Date: 20120608
  Serious: Yes (Other)
  Sender: FDA-Public Use
  Company Number: IT-JHP PHARMACEUTICALS, LLC-JHP201200033

PATIENT
  Sex: Male

DRUGS (5)
  1. DIAZEPAM [Concomitant]
     Dosage: UNK
     Route: 048
     Dates: start: 20110705, end: 20110928
  2. DANTRIUM [Suspect]
     Indication: QUADRIPARESIS
     Dosage: 150 MG, DAILY
     Route: 048
     Dates: start: 20110713, end: 20111128
  3. LIORESAL [Concomitant]
     Dosage: UNK
     Dates: start: 20110705, end: 20120117
  4. LORAZEPAM [Concomitant]
     Dosage: UNK
     Dates: start: 20110705, end: 20120117
  5. KEPPRA [Concomitant]
     Dosage: UNK
     Dates: start: 20110705, end: 20120117

REACTIONS (3)
  - VOMITING [None]
  - OESOPHAGEAL SPASM [None]
  - DYSPHAGIA [None]
